FAERS Safety Report 4717835-8 (Version None)
Quarter: 2005Q3

REPORT INFORMATION
  Report Type: 
  Country: None (occurrence: None)
  Receive Date: 20050718
  Receipt Date: 20041227
  Transmission Date: 20060218
  Serious: No
  Sender: FDA-Public Use
  Company Number: 2004001050

PATIENT
  Sex: Male

DRUGS (1)
  1. TARCEVA [Suspect]
     Dates: start: 20041217

REACTIONS (1)
  - DIARRHOEA [None]
